FAERS Safety Report 17625446 (Version 1)
Quarter: 2020Q2

REPORT INFORMATION
  Report Type: Report from Study
  Country: None (occurrence: CA)
  Receive Date: 20200403
  Receipt Date: 20200403
  Transmission Date: 20200713
  Serious: Yes (Other)
  Sender: FDA-Public Use
  Company Number: CA-ABBVIE-20K-028-3348465-00

PATIENT
  Sex: Female

DRUGS (3)
  1. HUMIRA [Suspect]
     Active Substance: ADALIMUMAB
     Indication: CROHN^S DISEASE
     Route: 058
     Dates: start: 20101007
  2. STELARA [Concomitant]
     Active Substance: USTEKINUMAB
     Indication: PRODUCT USED FOR UNKNOWN INDICATION
  3. HUMIRA [Suspect]
     Active Substance: ADALIMUMAB
     Route: 058

REACTIONS (17)
  - Gastric ulcer [Unknown]
  - Blood albumin decreased [Unknown]
  - Lung disorder [Unknown]
  - Gastrointestinal stoma complication [Unknown]
  - Alopecia areata [Not Recovered/Not Resolved]
  - Obstruction [Unknown]
  - Gastrointestinal erosion [Unknown]
  - Neuropathy peripheral [Unknown]
  - C-reactive protein increased [Unknown]
  - Oesophageal ulcer [Unknown]
  - Duodenal ulcer [Unknown]
  - Weight decreased [Recovering/Resolving]
  - Crohn^s disease [Unknown]
  - Anaemia [Unknown]
  - Influenza [Unknown]
  - Oesophagitis [Unknown]
  - Nasopharyngitis [Unknown]

NARRATIVE: CASE EVENT DATE: 2019
